FAERS Safety Report 5277642-7 (Version None)
Quarter: 2007Q1

REPORT INFORMATION
  Report Type: 
  Country: None (occurrence: None)
  Receive Date: 20070327
  Receipt Date: 20070326
  Transmission Date: 20070707
  Serious: Yes (Hospitalization)
  Sender: FDA-Public Use
  Company Number: US-BOEHRINGER INGELHEIM PHARMACEUTICALS, INC.-2007-BP-00896BP

PATIENT
  Age: 67 Year
  Sex: Female

DRUGS (11)
  1. SPIRIVA [Suspect]
     Indication: CHRONIC OBSTRUCTIVE PULMONARY DISEASE
     Route: 055
     Dates: start: 20050801
  2. NORVASC [Concomitant]
  3. K-DUR 10 [Concomitant]
  4. CELEXA [Concomitant]
  5. NEXIUM [Concomitant]
  6. CITALOPRAM HYDROBROMIDE [Concomitant]
  7. DETROL [Concomitant]
  8. TRAZODONE HCL [Concomitant]
  9. FLOVENT [Concomitant]
  10. LUNESTA [Concomitant]
  11. ASPIRIN [Concomitant]

REACTIONS (1)
  - PNEUMONIA [None]
